FAERS Safety Report 8386614-5 (Version None)
Quarter: 2012Q2

REPORT INFORMATION
  Report Type: 
  Country: None (occurrence: None)
  Receive Date: 20120525
  Receipt Date: 20120315
  Transmission Date: 20120825
  Serious: No
  Sender: FDA-Public Use
  Company Number: US-GLAXOSMITHKLINE-A0969901A

PATIENT
  Age: 57 Year
  Sex: Male

DRUGS (9)
  1. HYDROCHLOROTHIAZIDE [Concomitant]
  2. CARDIZEM [Concomitant]
  3. PRAVASTATIN SODIUM [Concomitant]
  4. FISH OIL [Concomitant]
  5. VERAMYST [Suspect]
     Indication: MULTIPLE ALLERGIES
     Dosage: 2SPR PER DAY
     Route: 045
     Dates: start: 20090101, end: 20120312
  6. CLONIDINE HCL [Concomitant]
  7. FOLIC ACID [Concomitant]
  8. ALLEGRA [Concomitant]
  9. LISINOPRIL [Concomitant]

REACTIONS (1)
  - RENAL FUNCTION TEST ABNORMAL [None]
